FAERS Safety Report 9867627 (Version 2)
Quarter: 2014Q1

REPORT INFORMATION
  Report Type: Report from Study
  Country: PH (occurrence: PH)
  Receive Date: 20140204
  Receipt Date: 20140204
  Transmission Date: 20141002
  Serious: Yes (Hospitalization)
  Sender: FDA-Public Use
  Company Number: PH-SANOFI-AVENTIS-2012SA041306

PATIENT
  Age: 45 Year
  Sex: Female
  Weight: 59 kg

DRUGS (6)
  1. TERIFLUNOMIDE [Suspect]
     Indication: MULTIPLE SCLEROSIS RELAPSE
     Route: 048
     Dates: start: 20120224
  2. LYRICA [Concomitant]
     Route: 065
  3. ESOMEPRAZOLE [Concomitant]
     Route: 065
  4. XANOR [Concomitant]
     Route: 065
  5. CELEBREX [Concomitant]
     Indication: PAIN
     Route: 065
  6. SERTRALINE HYDROCHLORIDE [Concomitant]
     Route: 065

REACTIONS (2)
  - Gastroenteritis [Recovered/Resolved]
  - Dehydration [Recovered/Resolved]
